FAERS Safety Report 11551499 (Version 3)
Quarter: 2015Q4

REPORT INFORMATION
  Report Type: Spontaneous
  Country: IT (occurrence: IT)
  Receive Date: 20150925
  Receipt Date: 20151216
  Transmission Date: 20160304
  Serious: Yes (Other)
  Sender: FDA-Public Use
  Company Number: IT-ROCHE-1638401

PATIENT
  Age: 84 Year
  Sex: Female

DRUGS (6)
  1. URSOBIL [Concomitant]
     Dosage: 450 MG MODIFIED-RELEASE HARD CAPSULES 20 CAPSULES
     Route: 048
  2. LOBIVON [Concomitant]
     Active Substance: NEBIVOLOL HYDROCHLORIDE
     Indication: HYPERTENSION
     Dosage: 28 TABLETS 5 MG
     Route: 048
  3. RIVOTRIL [Suspect]
     Active Substance: CLONAZEPAM
     Indication: AGITATION
     Dosage: 2.5 MG/ML ORAL DROPS, SOLUTION 10 ML BOTTLE
     Route: 048
     Dates: start: 20150101, end: 20150706
  4. COSOPT [Concomitant]
     Active Substance: DORZOLAMIDE HYDROCHLORIDE\TIMOLOL MALEATE
     Indication: GLAUCOMA
     Dosage: EYE DROPS SOLUTION 2%+0.5% ONE 5 ML BOTTLE WITH OC
     Route: 047
  5. GLUCOPHAGE [Concomitant]
     Active Substance: METFORMIN HYDROCHLORIDE
     Indication: TYPE 2 DIABETES MELLITUS
     Dosage: 850 MG COATED TABLETS 40 TABLETS
     Route: 048
  6. QUETIAPINE FUMARATE. [Concomitant]
     Active Substance: QUETIAPINE FUMARATE
     Route: 048

REACTIONS (1)
  - Sopor [Recovering/Resolving]

NARRATIVE: CASE EVENT DATE: 20150707
